FAERS Safety Report 15439902 (Version 3)
Quarter: 2019Q1

REPORT INFORMATION
  Report Type: Spontaneous
  Country: JP (occurrence: JP)
  Receive Date: 20180928
  Receipt Date: 20190305
  Transmission Date: 20190417
  Serious: Yes (Other)
  Sender: FDA-Public Use
  Company Number: JP-009507513-1809JPN001617J

PATIENT
  Age: 77 Year
  Sex: Male
  Weight: 49 kg

DRUGS (5)
  1. SULBACILLIN [Suspect]
     Active Substance: AMPICILLIN SODIUM\SULBACTAM SODIUM
     Indication: INFECTIOUS PLEURAL EFFUSION
     Dosage: 1.5 GRAM, QID
     Route: 041
     Dates: start: 20180811, end: 20180824
  2. VONOPRAZAN FUMARATE [Concomitant]
     Active Substance: VONOPRAZAN FUMURATE
     Indication: GASTROOESOPHAGEAL REFLUX DISEASE
     Dosage: 10 MILLIGRAM, QD
     Route: 048
     Dates: start: 20180621
  3. KEYTRUDA [Suspect]
     Active Substance: PEMBROLIZUMAB
     Dosage: UNK
     Route: 041
     Dates: end: 201809
  4. PREDNISOLONE. [Concomitant]
     Active Substance: PREDNISOLONE
     Indication: BRAIN OEDEMA
     Dosage: 5 MILLIGRAM, QD
     Route: 048
     Dates: start: 20180730
  5. KEYTRUDA [Suspect]
     Active Substance: PEMBROLIZUMAB
     Indication: NON-SMALL CELL LUNG CANCER
     Dosage: 200 MILLIGRAM, Q3W
     Route: 041
     Dates: start: 20180731, end: 20180731

REACTIONS (2)
  - Liver function test abnormal [Recovering/Resolving]
  - Infectious pleural effusion [Unknown]

NARRATIVE: CASE EVENT DATE: 20180802
